FAERS Safety Report 7910674-6 (Version None)
Quarter: 2011Q4

REPORT INFORMATION
  Report Type: 
  Country: None (occurrence: None)
  Receive Date: 20111111
  Receipt Date: 20111109
  Transmission Date: 20120403
  Serious: Yes (Hospitalization, Other)
  Sender: FDA-Public Use
  Company Number: SE-ABBOTT-11P-150-0863302-00

PATIENT
  Sex: Male

DRUGS (2)
  1. HUMIRA [Suspect]
     Indication: PRODUCT USED FOR UNKNOWN INDICATION
     Dates: start: 20101118
  2. HUMIRA [Suspect]
     Dates: start: 20110830

REACTIONS (8)
  - CLUMSINESS [None]
  - NEUROPATHY PERIPHERAL [None]
  - LIP SWELLING [None]
  - HYPOAESTHESIA [None]
  - ASTHENIA [None]
  - INFECTION [None]
  - HYPOAESTHESIA ORAL [None]
  - OEDEMA PERIPHERAL [None]
